FAERS Safety Report 9412238 (Version 1)
Quarter: 2013Q3

REPORT INFORMATION
  Report Type: Spontaneous
  Country: BR (occurrence: BR)
  Receive Date: 20130722
  Receipt Date: 20130722
  Transmission Date: 20140515
  Serious: Yes (Other)
  Sender: FDA-Public Use
  Company Number: BR-SANOFI-AVENTIS-2013SA071506

PATIENT
  Age: 51 Year
  Sex: Male
  Weight: 48 kg

DRUGS (9)
  1. APIDRA [Suspect]
     Indication: TYPE 2 DIABETES MELLITUS
     Dosage: DOSE:2 IU IN THE MORNING, 3 IU AFTER LUNCH AND 2IU AT NIGHT
     Route: 058
     Dates: start: 2010
  2. LANTUS [Suspect]
     Indication: TYPE 2 DIABETES MELLITUS
     Route: 058
     Dates: start: 2010
  3. AUTOPEN 24 [Concomitant]
     Indication: DEVICE THERAPY
  4. ERYTHROPOIETIN [Concomitant]
     Indication: RENAL DISORDER
     Dosage: 1 AMPOULE GIVEN EVERY 15 DAYS
     Route: 048
  5. DIAZEPAM [Concomitant]
     Indication: INSOMNIA
     Route: 048
  6. SIMVASTATIN [Concomitant]
     Indication: BLOOD CHOLESTEROL
     Route: 048
  7. NAPRIX [Concomitant]
     Indication: RENAL DISORDER
     Route: 048
  8. LASIX [Concomitant]
     Indication: DIURETIC THERAPY
     Route: 048
  9. PROPRANOLOL [Concomitant]
     Indication: BLOOD PRESSURE
     Dosage: STRENGTH: 40 MG
     Route: 048

REACTIONS (6)
  - Diabetic retinopathy [Not Recovered/Not Resolved]
  - Eye disorder [Not Recovered/Not Resolved]
  - Visual impairment [Not Recovered/Not Resolved]
  - Hypoglycaemia [Not Recovered/Not Resolved]
  - Vision blurred [Unknown]
  - Adverse event [Unknown]
